FAERS Safety Report 4321626-X (Version None)
Quarter: 2004Q1

REPORT INFORMATION
  Report Type: 
  Country: None (occurrence: None)
  Receive Date: 20040322
  Receipt Date: 20030710
  Transmission Date: 20041129
  Serious: No
  Sender: FDA-Public Use
  Company Number: US-BRISTOL-MYERS SQUIBB COMPANY-12376984

PATIENT
  Age: 29 Year
  Sex: Female
  Weight: 104 kg

DRUGS (1)
  1. VAGISTAT-1 [Suspect]
     Indication: VAGINAL MYCOSIS
     Route: 067
     Dates: start: 20030709, end: 20030709

REACTIONS (3)
  - VAGINAL BURNING SENSATION [None]
  - VAGINAL ERYTHEMA [None]
  - VAGINAL SWELLING [None]
